FAERS Safety Report 8175377-4 (Version None)
Quarter: 2012Q1

REPORT INFORMATION
  Report Type: 
  Country: None (occurrence: None)
  Receive Date: 20120229
  Receipt Date: 20120223
  Transmission Date: 20120608
  Serious: Yes (Other)
  Sender: FDA-Public Use
  Company Number: US-PFIZER INC-2012048829

PATIENT
  Sex: Female
  Weight: 70.295 kg

DRUGS (7)
  1. EFFEXOR XR [Suspect]
     Indication: PAIN
     Dosage: 150 MG, 1X/DAY
     Dates: start: 19980101, end: 20110101
  2. EFFEXOR XR [Suspect]
     Indication: DEPRESSION
  3. LYRICA [Suspect]
     Indication: FIBROMYALGIA
     Dosage: 100 MG, 1X/DAY
  4. ROBAXIN [Concomitant]
     Indication: MUSCLE RELAXANT THERAPY
     Dosage: 750 MG, 4X/DAY
  5. PREMARIN [Concomitant]
     Indication: HORMONE THERAPY
     Dosage: UNK
  6. CREON [Concomitant]
     Indication: PANCREATITIS CHRONIC
     Dosage: 4000 IU, 6X/DAY
  7. METHADON HCL TAB [Suspect]
     Indication: PAIN
     Dosage: 5 MG, 4X/DAY
     Dates: start: 20080101

REACTIONS (4)
  - FIBROMYALGIA [None]
  - BLOOD CHOLESTEROL INCREASED [None]
  - DRUG INEFFECTIVE [None]
  - MEMORY IMPAIRMENT [None]
